FAERS Safety Report 6906615-0 (Version None)
Quarter: 2010Q3

REPORT INFORMATION
  Report Type: 
  Country: None (occurrence: None)
  Receive Date: 20100804
  Receipt Date: 20100726
  Transmission Date: 20110219
  Serious: Yes (Other)
  Sender: FDA-Public Use
  Company Number: DE-JNJFOC-20100702610

PATIENT
  Sex: Male
  Weight: 71.5 kg

DRUGS (5)
  1. RISPERDAL [Suspect]
     Indication: PSYCHOTIC DISORDER
     Route: 048
     Dates: start: 20100625, end: 20100625
  2. PROMETHAZINE [Concomitant]
     Indication: ANXIETY
     Route: 048
  3. PIPAMPERON [Concomitant]
     Indication: PRODUCT USED FOR UNKNOWN INDICATION
     Route: 065
  4. FENISTIL [Concomitant]
     Route: 048
     Dates: start: 20100607, end: 20100706
  5. LORAZEPAM [Concomitant]
     Indication: ANXIETY
     Route: 048
     Dates: start: 20100608

REACTIONS (5)
  - CATATONIA [None]
  - FEEDING DISORDER [None]
  - GAIT DISTURBANCE [None]
  - NEUROLEPTIC MALIGNANT SYNDROME [None]
  - OEDEMA PERIPHERAL [None]
